FAERS Safety Report 7034082-8 (Version None)
Quarter: 2010Q4

REPORT INFORMATION
  Report Type: 
  Country: None (occurrence: None)
  Receive Date: 20101007
  Receipt Date: 20100929
  Transmission Date: 20110411
  Serious: Yes (Hospitalization)
  Sender: FDA-Public Use
  Company Number: US-AMGEN-KDL442745

PATIENT
  Sex: Male
  Weight: 90.8 kg

DRUGS (9)
  1. PROCRIT [Suspect]
     Indication: ANAEMIA
     Route: 058
     Dates: start: 20030301
  2. COUMADIN [Concomitant]
     Route: 048
  3. LEVOTHYROXINE [Concomitant]
     Route: 048
  4. FUROSEMIDE [Concomitant]
     Route: 048
  5. ALLOPURINOL [Concomitant]
     Route: 048
  6. AMIODARONE [Concomitant]
     Route: 048
  7. POLYSACCHARIDE-IRON COMPLEX [Concomitant]
     Route: 048
  8. ASPIRIN [Concomitant]
     Route: 048
  9. LIPITOR [Concomitant]
     Route: 048

REACTIONS (2)
  - HAEMATOCHEZIA [None]
  - WEIGHT DECREASED [None]
